FAERS Safety Report 13688869 (Version 1)
Quarter: 2017Q2

REPORT INFORMATION
  Report Type: Spontaneous
  Country: US (occurrence: US)
  Receive Date: 20170624
  Receipt Date: 20170624
  Transmission Date: 20170830
  Serious: Yes (Disabling)
  Sender: FDA-Public Use
  Company Number: None

PATIENT
  Age: 66 Year
  Sex: Female
  Weight: 55.35 kg

DRUGS (6)
  1. MAGNESIUM [Concomitant]
     Active Substance: MAGNESIUM
  2. PROBIOTICS [Concomitant]
     Active Substance: PROBIOTICS NOS
  3. ATIVAN [Suspect]
     Active Substance: LORAZEPAM
     Indication: LABYRINTHITIS
     Route: 048
     Dates: start: 20090609, end: 20090914
  4. VITAMIN D [Concomitant]
     Active Substance: CHOLECALCIFEROL
  5. CLONAZEPAM. [Suspect]
     Active Substance: CLONAZEPAM
     Indication: PRODUCT USED FOR UNKNOWN INDICATION
     Route: 048
     Dates: start: 20091125, end: 20101011
  6. NIACIN. [Concomitant]
     Active Substance: NIACIN

REACTIONS (9)
  - Gastric disorder [None]
  - Sleep disorder [None]
  - Drug dose omission [None]
  - Headache [None]
  - Tremor [None]
  - Dysstasia [None]
  - Malaise [None]
  - Diarrhoea [None]
  - Fear [None]

NARRATIVE: CASE EVENT DATE: 20090704
